FAERS Safety Report 23298778 (Version 4)
Quarter: 2024Q2

REPORT INFORMATION
  Report Type: Report from Study
  Country: US (occurrence: US)
  Receive Date: 20231214
  Receipt Date: 20240515
  Transmission Date: 20240716
  Serious: Yes (Other)
  Sender: FDA-Public Use
  Company Number: US-ABBVIE-5532648

PATIENT
  Sex: Female

DRUGS (2)
  1. HUMIRA [Suspect]
     Active Substance: ADALIMUMAB
     Indication: Rheumatoid arthritis
     Dosage: FORM STRENGTH: 40MG?CITRATE FREE
     Route: 058
     Dates: start: 20230214, end: 202302
  2. HUMIRA [Suspect]
     Active Substance: ADALIMUMAB
     Route: 058
     Dates: start: 20230215

REACTIONS (10)
  - Foot deformity [Unknown]
  - Pain in extremity [Recovering/Resolving]
  - Heart rate abnormal [Unknown]
  - Depression [Unknown]
  - Eye operation [Recovering/Resolving]
  - Weight abnormal [Recovering/Resolving]
  - Restlessness [Unknown]
  - Surgery [Unknown]
  - Malaise [Unknown]
  - Illness [Unknown]

NARRATIVE: CASE EVENT DATE: 20230101
